FAERS Safety Report 5907750-6 (Version None)
Quarter: 2008Q3

REPORT INFORMATION
  Report Type: 
  Country: None (occurrence: None)
  Receive Date: 20080929
  Receipt Date: 20080918
  Transmission Date: 20090109
  Serious: Yes (Other)
  Sender: FDA-Public Use
  Company Number: DE-GDP-08404651

PATIENT
  Sex: Male
  Weight: 83 kg

DRUGS (1)
  1. CLOBEX [Suspect]
     Indication: PSORIASIS
     Dosage: TOPICAL
     Route: 061

REACTIONS (3)
  - CONDITION AGGRAVATED [None]
  - GLAUCOMA [None]
  - VISUAL ACUITY REDUCED [None]
